FAERS Safety Report 7510127-3 (Version None)
Quarter: 2011Q2

REPORT INFORMATION
  Report Type: 
  Country: None (occurrence: None)
  Receive Date: 20110527
  Receipt Date: 20110516
  Transmission Date: 20111010
  Serious: Yes (Other)
  Sender: FDA-Public Use
  Company Number: US-BAYER-2011-041965

PATIENT
  Age: 34 Year
  Sex: Female

DRUGS (2)
  1. AVELOX [Suspect]
     Indication: EAR INFECTION
     Dosage: 400 MG, QD
     Route: 048
     Dates: start: 20110509, end: 20110512
  2. TRAMADOL HCL [Concomitant]

REACTIONS (3)
  - HYPOAESTHESIA FACIAL [None]
  - VIITH NERVE PARALYSIS [None]
  - AGEUSIA [None]
